FAERS Safety Report 6072965-6 (Version None)
Quarter: 2009Q1

REPORT INFORMATION
  Report Type: 
  Country: None (occurrence: None)
  Receive Date: 20090206
  Receipt Date: 20090126
  Transmission Date: 20090719
  Serious: Yes (Other)
  Sender: FDA-Public Use
  Company Number: 163416

PATIENT
  Age: 12 Year
  Sex: Female

DRUGS (5)
  1. VINCRISTINE SULFATE [Suspect]
     Indication: RHABDOMYOSARCOMA
  2. CYCLOPHOSPHAMIDE [Concomitant]
  3. DACTINOMYCIN [Concomitant]
  4. GENTAMICIN [Concomitant]
  5. LEVOFLOXACIN [Concomitant]

REACTIONS (7)
  - APOPTOSIS [None]
  - BLISTER [None]
  - CATHETER RELATED INFECTION [None]
  - METAPLASIA [None]
  - PYREXIA [None]
  - RASH PAPULAR [None]
  - SKIN PLAQUE [None]
